FAERS Safety Report 10215973 (Version 1)
Quarter: 2014Q2

REPORT INFORMATION
  Report Type: Spontaneous
  Country: FR (occurrence: None)
  Receive Date: 20140602
  Receipt Date: 20140602
  Transmission Date: 20141212
  Serious: Yes (Hospitalization)
  Sender: FDA-Public Use
  Company Number: 2357728

PATIENT
  Age: 54 Year
  Sex: Female

DRUGS (3)
  1. CARBOPLATIN [Suspect]
     Indication: OVARIAN CANCER STAGE IV
     Route: 041
     Dates: start: 20131230, end: 20131230
  2. METHYLPREDNISOLONE MERCK [Concomitant]
  3. ZOPHREN [Concomitant]

REACTIONS (4)
  - Burn oesophageal [None]
  - Nausea [None]
  - Vomiting [None]
  - Chills [None]
